FAERS Safety Report 18353744 (Version 3)
Quarter: 2020Q4

REPORT INFORMATION
  Report Type: Spontaneous
  Country: US (occurrence: US)
  Receive Date: 20201006
  Receipt Date: 20201104
  Transmission Date: 20210114
  Serious: Yes (Hospitalization)
  Sender: FDA-Public Use
  Company Number: US-BEH-2020123085

PATIENT
  Age: 63 Year
  Sex: Female
  Weight: 88.44 kg

DRUGS (3)
  1. BUDESONIDE. [Suspect]
     Active Substance: BUDESONIDE
     Route: 065
  2. VORICONAZOLE. [Suspect]
     Active Substance: VORICONAZOLE
     Route: 065
  3. HIZENTRA [Suspect]
     Active Substance: HUMAN IMMUNOGLOBULIN G
     Indication: IMMUNODEFICIENCY COMMON VARIABLE
     Dosage: 1 GRAM, QD FOR 12 MONTHS
     Route: 058
     Dates: start: 20200713

REACTIONS (2)
  - Malaise [Unknown]
  - Aspergillus infection [Recovering/Resolving]

NARRATIVE: CASE EVENT DATE: 202009
